FAERS Safety Report 25731435 (Version 1)
Quarter: 2025Q3

REPORT INFORMATION
  Report Type: Spontaneous
  Country: US (occurrence: None)
  Receive Date: 20250827
  Receipt Date: 20250827
  Transmission Date: 20251020
  Serious: Yes (Death, Hospitalization)
  Sender: FDA-CTU
  Company Number: None

PATIENT
  Age: 68 Year
  Sex: Male
  Weight: 61 kg

DRUGS (4)
  1. HEPARIN-CALCIUM [Suspect]
     Active Substance: HEPARIN CALCIUM
     Indication: Anticoagulant therapy
     Dates: start: 20250427, end: 20250512
  2. LINEZOLID [Suspect]
     Active Substance: LINEZOLID
     Indication: Osteomyelitis
     Dosage: FREQUENCY : TWICE A DAY;?
     Route: 048
     Dates: start: 20250514, end: 20250518
  3. ARGATROBAN [Suspect]
     Active Substance: ARGATROBAN
  4. ELIQUIS [Suspect]
     Active Substance: APIXABAN

REACTIONS (5)
  - Thrombocytopenia [None]
  - Hypercapnia [None]
  - Acute myocardial infarction [None]
  - Osteomyelitis [None]
  - Respiratory failure [None]

NARRATIVE: CASE EVENT DATE: 20250518
